FAERS Safety Report 12575873 (Version 1)
Quarter: 2016Q3

REPORT INFORMATION
  Report Type: Spontaneous
  Country: US (occurrence: US)
  Receive Date: 20160720
  Receipt Date: 20160720
  Transmission Date: 20161109
  Serious: No
  Sender: FDA-Public Use
  Company Number: US-BAYER-2016-135625

PATIENT
  Age: 25 Year
  Sex: Female

DRUGS (1)
  1. CLARITIN-D 24 HOUR [Suspect]
     Active Substance: LORATADINE\PSEUDOEPHEDRINE SULFATE
     Indication: HYPERSENSITIVITY
     Dosage: 2 DF, ONCE
     Dates: start: 20160710, end: 20160710

REACTIONS (4)
  - Nausea [Unknown]
  - Throat irritation [Unknown]
  - Dizziness [Unknown]
  - Extra dose administered [None]

NARRATIVE: CASE EVENT DATE: 20160710
